FAERS Safety Report 9505166 (Version 1)
Quarter: 2013Q1

REPORT INFORMATION
  Report Type: Spontaneous
  Country: US (occurrence: None)
  Receive Date: 20130225
  Receipt Date: 20130225
  Transmission Date: 20140127
  Serious: No
  Sender: FDA-Public Use
  Company Number: 368699

PATIENT
  Sex: 0

DRUGS (1)
  1. VICTOZA [Suspect]
     Indication: TYPE 2 DIABETES MELLITUS
     Route: 058
     Dates: start: 20121210

REACTIONS (6)
  - Fatigue [None]
  - Influenza like illness [None]
  - Dizziness [None]
  - Constipation [None]
  - Nausea [None]
  - Vomiting [None]
